FAERS Safety Report 7591010-4 (Version None)
Quarter: 2011Q3

REPORT INFORMATION
  Report Type: 
  Country: None (occurrence: None)
  Receive Date: 20110705
  Receipt Date: 20110701
  Transmission Date: 20111222
  Serious: Yes (Disabling)
  Sender: FDA-Public Use
  Company Number: GB-PFIZER INC-2011091394

PATIENT
  Age: 49 Year
  Sex: Female
  Weight: 56 kg

DRUGS (2)
  1. VARENICLINE TARTRATE [Suspect]
     Indication: SMOKING CESSATION THERAPY
     Dosage: 1 MG, 2X/DAY
     Route: 048
     Dates: start: 20101103, end: 20110115
  2. CINNARIZINE [Concomitant]
     Indication: LABYRINTHITIS
     Dosage: 30 MG, 2X/DAY
     Route: 048
     Dates: start: 20010101

REACTIONS (7)
  - DEPRESSION [None]
  - ANXIETY [None]
  - INTENTIONAL SELF-INJURY [None]
  - INSOMNIA [None]
  - ANGER [None]
  - SUICIDAL IDEATION [None]
  - DEPRESSED MOOD [None]
